FAERS Safety Report 19665786 (Version 1)
Quarter: 2021Q3

REPORT INFORMATION
  Report Type: Spontaneous
  Country: US (occurrence: US)
  Receive Date: 20210806
  Receipt Date: 20210806
  Transmission Date: 20211014
  Serious: Yes (Other)
  Sender: FDA-Public Use
  Company Number: US-SA-2021SA258020

PATIENT
  Age: 50 Year
  Sex: Male

DRUGS (1)
  1. ZANTAC [Suspect]
     Active Substance: RANITIDINE HYDROCHLORIDE
     Indication: DYSPEPSIA
     Dosage: 25 MG, QD
     Dates: start: 198001, end: 201501

REACTIONS (4)
  - Bladder cancer stage II [Unknown]
  - Renal cancer stage II [Unknown]
  - Prostate cancer stage III [Unknown]
  - Uterine cancer [Unknown]

NARRATIVE: CASE EVENT DATE: 20100101
